FAERS Safety Report 15798541 (Version 1)
Quarter: 2019Q1

REPORT INFORMATION
  Report Type: Report from Study
  Country: CA (occurrence: CA)
  Receive Date: 20190108
  Receipt Date: 20190108
  Transmission Date: 20190417
  Serious: Yes (Death, Hospitalization)
  Sender: FDA-Public Use
  Company Number: CA-JNJFOC-20190105421

PATIENT
  Age: 69 Year
  Sex: Male

DRUGS (1)
  1. STELARA [Suspect]
     Active Substance: USTEKINUMAB
     Indication: PSORIASIS
     Dosage: STRENGTH = 90 MG
     Route: 058
     Dates: start: 20110913, end: 20181203

REACTIONS (3)
  - Clavicle fracture [Unknown]
  - Lung cancer metastatic [Fatal]
  - Fall [Unknown]

NARRATIVE: CASE EVENT DATE: 20181207
